FAERS Safety Report 12626143 (Version 1)
Quarter: 2016Q3

REPORT INFORMATION
  Report Type: Report from Study
  Country: US (occurrence: US)
  Receive Date: 20160805
  Receipt Date: 20160805
  Transmission Date: 20161109
  Serious: Yes (Other)
  Sender: FDA-Public Use
  Company Number: US-009507513-1607USA012306

PATIENT
  Age: 39 Year
  Sex: Female

DRUGS (1)
  1. TEMODAR [Suspect]
     Active Substance: TEMOZOLOMIDE

REACTIONS (1)
  - Mutagenic effect [Unknown]
